APPROVED DRUG PRODUCT: TRIAMCINOLONE ACETONIDE
Active Ingredient: TRIAMCINOLONE ACETONIDE
Strength: 0.147MG/GM
Dosage Form/Route: SPRAY;TOPICAL
Application: A207094 | Product #001 | TE Code: AT
Applicant: SCIEGEN PHARMACEUTICALS INC
Approved: Dec 7, 2016 | RLD: No | RS: No | Type: RX